FAERS Safety Report 6093655-X (Version None)
Quarter: 2009Q1

REPORT INFORMATION
  Report Type: 
  Country: None (occurrence: None)
  Receive Date: 20090223
  Receipt Date: 20090223
  Transmission Date: 20090719
  Serious: Yes (Other)
  Sender: FDA-Public Use
  Company Number: None

PATIENT
  Sex: Male
  Weight: 57.6068 kg

DRUGS (1)
  1. SOTRET [Suspect]
     Indication: ACNE
     Dosage: 30MG B.I.D. PO
     Route: 048
     Dates: start: 20090115, end: 20090121

REACTIONS (2)
  - DEAFNESS NEUROSENSORY [None]
  - DEAFNESS UNILATERAL [None]
